FAERS Safety Report 12606023 (Version 1)
Quarter: 2016Q3

REPORT INFORMATION
  Report Type: Spontaneous
  Country: US (occurrence: US)
  Receive Date: 20160729
  Receipt Date: 20160729
  Transmission Date: 20161109
  Serious: No
  Sender: FDA-Public Use
  Company Number: US-PFIZER INC-2016332233

PATIENT
  Sex: Female

DRUGS (2)
  1. PREMARIN [Suspect]
     Active Substance: ESTROGENS, CONJUGATED
     Dosage: A LITTLE TINY AMOUNT 3 TIMES A WEEK
  2. PREMARIN [Suspect]
     Active Substance: ESTROGENS, CONJUGATED
     Dosage: MIGHT BE AN INCH, TWO TIMES A WEEK

REACTIONS (6)
  - Migraine with aura [Unknown]
  - Wrong technique in product usage process [Unknown]
  - Cervix disorder [Unknown]
  - Hot flush [Unknown]
  - Chills [Unknown]
  - Drug dose omission [Unknown]
